FAERS Safety Report 11382048 (Version 4)
Quarter: 2015Q4

REPORT INFORMATION
  Report Type: Report from Study
  Country: US (occurrence: US)
  Receive Date: 20150814
  Receipt Date: 20151030
  Transmission Date: 20160304
  Serious: Yes (Other)
  Sender: FDA-Public Use
  Company Number: PHEH2015US015055

PATIENT
  Age: 24 Year
  Sex: Male
  Weight: 88 kg

DRUGS (5)
  1. VITAMIN D [Concomitant]
     Active Substance: CHOLECALCIFEROL
     Indication: VITAMIN D DEFICIENCY
     Dosage: 50000 IU, QW
     Route: 048
     Dates: start: 201502
  2. EXTAVIA [Suspect]
     Active Substance: INTERFERON BETA-1B
     Dosage: 0.75 ML (0.1875 MG), WEEKS 5-7, QOD
     Route: 058
  3. EXTAVIA [Suspect]
     Active Substance: INTERFERON BETA-1B
     Indication: MULTIPLE SCLEROSIS
     Dosage: 0.25 ML (0.0625 MG),WEEKS 1-2, QOD
     Route: 058
     Dates: start: 20150630
  4. EXTAVIA [Suspect]
     Active Substance: INTERFERON BETA-1B
     Dosage: 0.5 ML (0.125 MG), WEEKS 3-4, QOD
     Route: 058
  5. EXTAVIA [Suspect]
     Active Substance: INTERFERON BETA-1B
     Dosage: 1 ML (0.25 MG), WEEKS 7+,QOD
     Route: 058
     Dates: start: 201507, end: 20150903

REACTIONS (4)
  - Injection site bruising [Recovered/Resolved]
  - Liver function test abnormal [Recovered/Resolved]
  - Injection site discolouration [Unknown]
  - Hepatic enzyme increased [Unknown]

NARRATIVE: CASE EVENT DATE: 201507
